FAERS Safety Report 4897050-8 (Version None)
Quarter: 2006Q1

REPORT INFORMATION
  Report Type: 
  Country: None (occurrence: None)
  Receive Date: 20060127
  Receipt Date: 20060117
  Transmission Date: 20060701
  Serious: Yes (Death)
  Sender: FDA-Public Use
  Company Number: 2006-00196

PATIENT
  Age: 55 Year
  Sex: Female

DRUGS (2)
  1. COLCHICINE (WATSON LABORATORIES)(COLCHICINE) TABLET, 0.6MG [Suspect]
  2. CLARITHROMYCIN (CLARTHROMYCIN [Suspect]
     Indication: PNEUMONIA
     Dosage: 250 MG, BID, X3DOSES, ORAL
     Route: 048

REACTIONS (3)
  - BONE MARROW FAILURE [None]
  - DRUG INTERACTION [None]
  - FEBRILE NEUTROPENIA [None]
